FAERS Safety Report 7358239-1 (Version None)
Quarter: 2011Q1

REPORT INFORMATION
  Report Type: 
  Country: None (occurrence: None)
  Receive Date: 20110317
  Receipt Date: 20110309
  Transmission Date: 20110831
  Serious: Yes (Hospitalization)
  Sender: FDA-Public Use
  Company Number: FR-ROCHE-764501

PATIENT
  Sex: Male

DRUGS (6)
  1. SEROPLEX [Suspect]
     Dosage: FREQUENCY: ONCE
     Route: 048
     Dates: start: 20110120, end: 20110120
  2. DAFALGAN [Concomitant]
     Dosage: FREQUENCY-ONCE
     Route: 048
     Dates: start: 20110120, end: 20110120
  3. TRIMEPRAZINE TARTRATE [Suspect]
     Route: 048
     Dates: start: 20110120, end: 20110120
  4. RIVOTRIL [Suspect]
     Dosage: FREQUENCY: ONCE
     Route: 048
     Dates: start: 20110120, end: 20110120
  5. DEPAMIDE [Suspect]
     Dosage: FREQUENCY: ONCE
     Route: 048
     Dates: start: 20110120, end: 20110120
  6. ZYPREXA [Suspect]
     Dosage: FREQUENCY: AT ONCE.
     Route: 048
     Dates: start: 20110120, end: 20110120

REACTIONS (2)
  - POISONING [None]
  - SOMNOLENCE [None]
